APPROVED DRUG PRODUCT: GEMCITABINE HYDROCHLORIDE
Active Ingredient: GEMCITABINE HYDROCHLORIDE
Strength: EQ 1GM BASE/VIAL
Dosage Form/Route: INJECTABLE;INJECTION
Application: A204520 | Product #002 | TE Code: AP
Applicant: GLAND PHARMA LTD
Approved: Jan 5, 2016 | RLD: No | RS: No | Type: RX